FAERS Safety Report 12973691 (Version 2)
Quarter: 2017Q1

REPORT INFORMATION
  Report Type: Spontaneous
  Country: US (occurrence: US)
  Receive Date: 20161124
  Receipt Date: 20170117
  Transmission Date: 20170428
  Serious: No
  Sender: FDA-Public Use
  Company Number: US-ASTRAZENECA-2016SF21987

PATIENT
  Sex: Male
  Weight: 90.7 kg

DRUGS (1)
  1. PULMICORT FLEXHALER [Suspect]
     Active Substance: BUDESONIDE
     Indication: BRONCHITIS
     Route: 055
     Dates: start: 20150916

REACTIONS (6)
  - Drug dose omission [Unknown]
  - Malaise [Unknown]
  - Intentional product misuse [Unknown]
  - Product use issue [Unknown]
  - Product quality issue [Unknown]
  - Off label use [Unknown]
